FAERS Safety Report 9849947 (Version 3)
Quarter: 2014Q2

REPORT INFORMATION
  Report Type: Spontaneous
  Country: RU (occurrence: RU)
  Receive Date: 20140128
  Receipt Date: 20140402
  Transmission Date: 20141212
  Serious: Yes (Life-Threatening)
  Sender: FDA-Public Use
  Company Number: RU-ASTRAZENECA-2014SE05454

PATIENT
  Age: 17 Year
  Sex: Female
  Weight: 53 kg

DRUGS (2)
  1. NAROPIN [Suspect]
     Indication: ANAESTHESIA
     Dosage: 7.5 MG/ML
     Route: 050
     Dates: start: 201312
  2. NAROPIN [Suspect]
     Indication: ANAESTHESIA
     Dosage: 10 ML OF 7.5 MG/ML
     Route: 050
     Dates: start: 20140123, end: 20140123

REACTIONS (9)
  - Multi-organ failure [Not Recovered/Not Resolved]
  - Respiratory disorder [Not Recovered/Not Resolved]
  - Dyspnoea [Unknown]
  - Loss of consciousness [Unknown]
  - Cardiac arrest [Unknown]
  - Respiratory arrest [Unknown]
  - Convulsion [Unknown]
  - Headache [Unknown]
  - Dyspnoea [Unknown]
